FAERS Safety Report 16072390 (Version 1)
Quarter: 2019Q1

REPORT INFORMATION
  Report Type: Spontaneous
  Country: US (occurrence: US)
  Receive Date: 20190314
  Receipt Date: 20190314
  Transmission Date: 20190418
  Serious: No
  Sender: FDA-Public Use
  Company Number: US-ALLERGAN-1835750US

PATIENT
  Sex: Female

DRUGS (3)
  1. VESICARE [Concomitant]
     Active Substance: SOLIFENACIN SUCCINATE
     Indication: URINARY INCONTINENCE
     Route: 065
  2. ZEGERID [Concomitant]
     Active Substance: OMEPRAZOLE\SODIUM BICARBONATE
     Indication: GASTRIC DISORDER
     Route: 065
  3. ASACOL HD [Suspect]
     Active Substance: MESALAMINE
     Indication: COLITIS
     Dosage: 800 MG, TID
     Route: 065

REACTIONS (2)
  - Incorrect dose administered [Unknown]
  - Swollen tongue [Not Recovered/Not Resolved]
